FAERS Safety Report 5403921-6 (Version None)
Quarter: 2007Q3

REPORT INFORMATION
  Report Type: 
  Country: None (occurrence: None)
  Receive Date: 20070802
  Receipt Date: 20070730
  Transmission Date: 20080115
  Serious: Yes (Other)
  Sender: FDA-Public Use
  Company Number: US-GENENTECH-245393

PATIENT
  Sex: Male

DRUGS (4)
  1. LUCENTIS [Suspect]
     Indication: MACULAR DEGENERATION
     Dosage: UNK, UNKNOWN
     Route: 065
     Dates: start: 20060801
  2. LUCENTIS [Suspect]
     Dosage: UNK, UNKNOWN
     Route: 065
     Dates: start: 20061101
  3. LUCENTIS [Suspect]
     Dosage: UNK, UNKNOWN
     Route: 065
     Dates: start: 20061201
  4. PRESERVISION NOS [Concomitant]
     Indication: DRUG USE FOR UNKNOWN INDICATION
     Dosage: UNK, UNKNOWN
     Route: 065
     Dates: end: 20061201

REACTIONS (1)
  - PROSTATE CANCER [None]
